FAERS Safety Report 5515945-9 (Version None)
Quarter: 2007Q4

REPORT INFORMATION
  Report Type: 
  Country: None (occurrence: None)
  Receive Date: 20071109
  Receipt Date: 20070919
  Transmission Date: 20080405
  Serious: Yes (Hospitalization)
  Sender: FDA-Public Use
  Company Number: 2007S1009518

PATIENT
  Age: 26 Year
  Sex: Male

DRUGS (11)
  1. AZATHIOPRINE SODIUM [Suspect]
     Dosage: DAILY, ORAL
     Route: 048
     Dates: start: 19980423, end: 19980504
  2. ORTHOCLONE OKT3 [Suspect]
     Indication: RENAL TRANSPLANT
     Dosage: 5 MG; ORAL
     Route: 048
     Dates: start: 19980502, end: 19980502
  3. NEORAL [Suspect]
     Dosage: DAILY; ORAL
     Route: 048
     Dates: start: 19980423, end: 19980501
  4. TACROLIMUS [Suspect]
     Dosage: DAILY; ORAL
     Route: 048
     Dates: start: 19980503, end: 19980506
  5. ASPIRIN [Concomitant]
  6. DOMPERIDONE [Concomitant]
  7. FOLIC ACID [Concomitant]
  8. LANSOPRAZOLE [Concomitant]
  9. MYCOPHENOLATE MOFETIL [Concomitant]
  10. NYSTATIN [Concomitant]
  11. PREDNISOLONE [Concomitant]

REACTIONS (4)
  - ANAPHYLACTIC REACTION [None]
  - BRONCHOSPASM [None]
  - INFLUENZA LIKE ILLNESS [None]
  - MICROANGIOPATHIC HAEMOLYTIC ANAEMIA [None]
